FAERS Safety Report 7662840-5 (Version None)
Quarter: 2011Q3

REPORT INFORMATION
  Report Type: 
  Country: None (occurrence: None)
  Receive Date: 20110805
  Receipt Date: 20100908
  Transmission Date: 20111222
  Serious: No
  Sender: FDA-Public Use
  Company Number: US-ABBOTT-10P-163-0670656-00

PATIENT
  Sex: Female
  Weight: 90.8 kg

DRUGS (3)
  1. NIASPAN [Suspect]
     Indication: HIGH DENSITY LIPOPROTEIN DECREASED
     Dosage: AT HOUR OF SLEEP
     Route: 048
  2. PAXIL [Concomitant]
     Indication: CONVULSION
  3. NIASPAN [Suspect]
     Indication: FAMILIAL RISK FACTOR

REACTIONS (5)
  - HEART RATE INCREASED [None]
  - MIDDLE INSOMNIA [None]
  - ERYTHEMA [None]
  - SKIN WARM [None]
  - DIZZINESS [None]
